FAERS Safety Report 7588609-8 (Version None)
Quarter: 2011Q3

REPORT INFORMATION
  Report Type: 
  Country: None (occurrence: None)
  Receive Date: 20110705
  Receipt Date: 20110627
  Transmission Date: 20111222
  Serious: Yes (Death, Hospitalization)
  Sender: FDA-Public Use
  Company Number: FR-JNJFOC-20110510218

PATIENT
  Sex: Male
  Weight: 65 kg

DRUGS (12)
  1. MORPHINE SULFATE [Concomitant]
     Indication: BONE PAIN
     Route: 048
     Dates: start: 20110527
  2. ABIRATERONE ACETATE [Suspect]
     Indication: PROSTATE CANCER
     Route: 048
     Dates: start: 20110414, end: 20110626
  3. ZOMETA [Concomitant]
     Indication: METASTASES TO BONE
     Route: 042
     Dates: start: 20100701
  4. ABIRATERONE ACETATE [Suspect]
     Route: 048
  5. POTASSIUM CHLORIDE [Concomitant]
     Indication: PRODUCT USED FOR UNKNOWN INDICATION
     Route: 048
     Dates: start: 20101101
  6. PREDNISOLONE [Suspect]
     Indication: PROSTATE CANCER
     Route: 048
     Dates: start: 20110429
  7. MORPHINE SULFATE [Concomitant]
     Indication: BONE PAIN
     Route: 048
     Dates: start: 20110527
  8. KETAMINE HCL [Concomitant]
     Indication: BONE PAIN
     Route: 048
     Dates: start: 20110527
  9. IMOVANE [Concomitant]
     Indication: INSOMNIA
     Route: 048
     Dates: start: 20110521, end: 20110606
  10. EDUCTYL [Concomitant]
     Indication: CONSTIPATION
     Route: 054
     Dates: start: 20110515, end: 20110606
  11. PERISTALTINE [Concomitant]
     Indication: CONSTIPATION
     Route: 048
     Dates: start: 20110530, end: 20110606
  12. ACETAMINOPHEN [Concomitant]
     Indication: BONE PAIN
     Route: 048
     Dates: start: 20110531, end: 20110606

REACTIONS (6)
  - ANAEMIA [None]
  - DRUG INEFFECTIVE [None]
  - PYREXIA [None]
  - PROSTATE CANCER [None]
  - GENERAL PHYSICAL HEALTH DETERIORATION [None]
  - BONE PAIN [None]
